FAERS Safety Report 17180810 (Version 1)
Quarter: 2019Q4

REPORT INFORMATION
  Report Type: Report from Study
  Country: US (occurrence: US)
  Receive Date: 20191219
  Receipt Date: 20191219
  Transmission Date: 20200122
  Serious: No
  Sender: FDA-Public Use
  Company Number: NVSC2019US074087

PATIENT
  Age: 49 Year
  Sex: Female
  Weight: 50 kg

DRUGS (1)
  1. TOMYCINE [Suspect]
     Active Substance: TOBRAMYCIN
     Indication: BRONCHIECTASIS
     Dosage: 4X2 TIMES DAILY
     Route: 055

REACTIONS (5)
  - Nausea [Not Recovered/Not Resolved]
  - Dysgeusia [Not Recovered/Not Resolved]
  - Weight gain poor [Not Recovered/Not Resolved]
  - Fatigue [Not Recovered/Not Resolved]
  - Appetite disorder [Not Recovered/Not Resolved]
